FAERS Safety Report 9792971 (Version 7)
Quarter: 2014Q1

REPORT INFORMATION
  Report Type: Report from Study
  Country: PL (occurrence: PL)
  Receive Date: 20140102
  Receipt Date: 20140306
  Transmission Date: 20141002
  Serious: Yes (Death, Life-Threatening)
  Sender: FDA-Public Use
  Company Number: PL-EISAI INC-E2007-01468-CLI-PL

PATIENT
  Age: 59 Year
  Sex: Male
  Weight: 102 kg

DRUGS (10)
  1. E2007 (PERAMPANEL) [Suspect]
     Indication: GRAND MAL CONVULSION
     Dosage: DOUBLE-BLIND (WEEKLY UP-TITRATION TO TARGET DOSE OF 8 MG DAILY)
     Route: 048
     Dates: start: 20130214, end: 20130629
  2. E2007 (PERAMPANEL) [Suspect]
     Dosage: EXTENSION PHASE/CONVERSION PERIOD
     Route: 048
     Dates: start: 20130630, end: 20130705
  3. E2007 (PERAMPANEL) [Suspect]
     Route: 048
     Dates: start: 20130706, end: 20131227
  4. HYDROCHLOROTHIAZIDE [Suspect]
     Indication: HYPERTENSION
     Route: 048
     Dates: start: 20130320
  5. DEPAKINE CHRONO [Suspect]
     Indication: EPILEPSY
     Route: 048
     Dates: start: 1998
  6. LAMITRIN [Concomitant]
     Indication: EPILEPSY
     Route: 048
     Dates: start: 1998
  7. KEPPRA [Concomitant]
     Indication: EPILEPSY
     Route: 048
     Dates: start: 20120328
  8. METFORMAX [Concomitant]
     Indication: DIABETES MELLITUS
     Route: 048
     Dates: start: 2002
  9. AMARYL [Concomitant]
     Indication: DIABETES MELLITUS
     Route: 048
     Dates: start: 2002
  10. BISOCARD [Concomitant]
     Indication: HYPERTENSION
     Route: 048
     Dates: start: 20130320

REACTIONS (1)
  - Pancreatitis acute [Fatal]
